FAERS Safety Report 19856227 (Version 1)
Quarter: 2021Q3

REPORT INFORMATION
  Report Type: Spontaneous
  Country: DE (occurrence: DE)
  Receive Date: 20210920
  Receipt Date: 20210920
  Transmission Date: 20211014
  Serious: Yes (Death, Hospitalization, Other)
  Sender: FDA-Public Use
  Company Number: DE-TEVA-2021-DE-1953153

PATIENT
  Age: 89 Year
  Sex: Male
  Weight: 60 kg

DRUGS (7)
  1. MIRTAZAPIN [Concomitant]
     Active Substance: MIRTAZAPINE
     Dosage: 15 MILLIGRAM DAILY; 0?0?0?1
  2. AZATHIOPRIN [Suspect]
     Active Substance: AZATHIOPRINE
     Dosage: 100 MILLIGRAM DAILY; 1?0?1?0
  3. PYRIDOSTIGMIN [Concomitant]
     Dosage: 180 MILLIGRAM DAILY; 0?0?0?1
  4. PYRIDOSTIGMIN [Concomitant]
     Dosage: 60 MG, SCHEME
  5. PREDNISOLON [Suspect]
     Active Substance: PREDNISOLONE
     Dosage: 50 MILLIGRAM DAILY; 1?0?0?0
  6. CALCIUM [Concomitant]
     Active Substance: CALCIUM
     Dosage: 1 DOSAGE FORMS DAILY; 1?0?0?0
  7. ESOMEPRAZOLE. [Concomitant]
     Active Substance: ESOMEPRAZOLE MAGNESIUM
     Dosage: 40 MILLIGRAM DAILY;  0?0?1?0

REACTIONS (12)
  - Depressed level of consciousness [Unknown]
  - Systemic infection [Unknown]
  - Respiratory failure [Unknown]
  - Electrocardiogram abnormal [Unknown]
  - Tachypnoea [Unknown]
  - Myasthenia gravis crisis [Unknown]
  - Anaemia [Unknown]
  - Hypothermia [Unknown]
  - Bradycardia [Unknown]
  - Fall [Unknown]
  - Dehydration [Unknown]
  - General physical health deterioration [Unknown]
